FAERS Safety Report 9745326 (Version 1)
Quarter: 2013Q4

REPORT INFORMATION
  Report Type: Report from Study
  Country: GB (occurrence: GB)
  Receive Date: 20131211
  Receipt Date: 20131211
  Transmission Date: 20140711
  Serious: Yes (Other)
  Sender: FDA-Public Use
  Company Number: GB-AMGEN-NZLCT2013086340

PATIENT
  Age: 67 Year
  Sex: Male
  Weight: 99 kg

DRUGS (4)
  1. ETANERCEPT [Suspect]
     Indication: PRODUCT USED FOR UNKNOWN INDICATION
     Dosage: 50 MG, WEEKLY
     Route: 065
     Dates: start: 20100428, end: 20101027
  2. SIMVASTATIN [Concomitant]
     Dosage: UNK
     Dates: start: 20050101
  3. SIMVASTATIN [Concomitant]
     Dosage: UNK
     Dates: start: 20051024
  4. SIMVASTATIN [Concomitant]
     Dosage: UNK
     Dates: start: 20070101

REACTIONS (1)
  - Prostate cancer [Not Recovered/Not Resolved]
